FAERS Safety Report 6965174-7 (Version None)
Quarter: 2010Q3

REPORT INFORMATION
  Report Type: 
  Country: None (occurrence: None)
  Receive Date: 20100903
  Receipt Date: 20100825
  Transmission Date: 20110219
  Serious: Yes (Other)
  Sender: FDA-Public Use
  Company Number: JP-JNJFOC-20100900141

PATIENT
  Age: 13 Year
  Sex: Male

DRUGS (5)
  1. REMICADE [Suspect]
     Indication: ACUTE GRAFT VERSUS HOST DISEASE
     Route: 042
  2. METHYLPREDNISOLONE [Concomitant]
     Indication: ACUTE GRAFT VERSUS HOST DISEASE
  3. TACROLIMUS [Concomitant]
     Indication: ACUTE GRAFT VERSUS HOST DISEASE
  4. MYCOPHENOLATE MOFETIL [Concomitant]
     Indication: ACUTE GRAFT VERSUS HOST DISEASE
  5. ALBUMIN (HUMAN) [Concomitant]

REACTIONS (1)
  - ILEUS [None]
